FAERS Safety Report 4451300-0 (Version None)
Quarter: 2004Q3

REPORT INFORMATION
  Report Type: 
  Country: None (occurrence: None)
  Receive Date: 20040916
  Receipt Date: 20040907
  Transmission Date: 20050211
  Serious: Yes (Hospitalization)
  Sender: FDA-Public Use
  Company Number: US-AMGEN-US090671

PATIENT
  Age: 74 Year
  Sex: Female
  Weight: 46.3 kg

DRUGS (5)
  1. PROCRIT [Suspect]
     Indication: ANAEMIA OF MALIGNANT DISEASE
     Dates: end: 20040801
  2. LASIX [Concomitant]
  3. METOPROLOL [Concomitant]
  4. ATIVAN [Concomitant]
  5. OXYGEN [Concomitant]

REACTIONS (4)
  - ASTHENIA [None]
  - MALAISE [None]
  - PNEUMONIA [None]
  - SOMNOLENCE [None]
